FAERS Safety Report 4875706-0 (Version None)
Quarter: 2006Q1

REPORT INFORMATION
  Report Type: 
  Country: None (occurrence: None)
  Receive Date: 20060105
  Receipt Date: 20051222
  Transmission Date: 20060701
  Serious: Yes (Congenital Anomaly)
  Sender: FDA-Public Use
  Company Number: 2005RR-01410

PATIENT
  Age: 1 Day
  Sex: Female

DRUGS (5)
  1. ENALAPRIL MALEATE [Suspect]
     Dosage: 5 MG, QD, TRANSPLACENTAL
     Route: 064
  2. LABETALOL [Concomitant]
  3. AMILORIDE (AMILORIDE) [Concomitant]
  4. HYDROCHLOROTHIAZIDE [Concomitant]
  5. PRAZOSIN [Concomitant]

REACTIONS (7)
  - DRUG EXPOSURE DURING PREGNANCY [None]
  - FOETAL CARDIAC DISORDER [None]
  - OLIGOHYDRAMNIOS [None]
  - PREMATURE BABY [None]
  - RENAL FAILURE NEONATAL [None]
  - RENAL TUBULAR ACIDOSIS [None]
  - URINE ABNORMALITY [None]
